FAERS Safety Report 11329008 (Version 1)
Quarter: 2015Q3

REPORT INFORMATION
  Report Type: Spontaneous
  Country: CH (occurrence: CH)
  Receive Date: 20150802
  Receipt Date: 20150802
  Transmission Date: 20151125
  Serious: Yes (Other)
  Sender: FDA-Public Use
  Company Number: CH-BAYER-2015-387080

PATIENT
  Age: 59 Year
  Sex: Female

DRUGS (8)
  1. XGEVA [Concomitant]
     Active Substance: DENOSUMAB
     Dosage: 120 MG
     Route: 058
  2. NEXAVAR [Suspect]
     Active Substance: SORAFENIB
     Indication: FOLLICULAR THYROID CANCER
     Dosage: 600 MG
     Route: 048
     Dates: start: 20130623, end: 20130723
  3. NEXAVAR [Suspect]
     Active Substance: SORAFENIB
     Indication: FOLLICULAR THYROID CANCER
     Dosage: 600 MG
     Route: 048
     Dates: start: 20140823
  4. NEXAVAR [Suspect]
     Active Substance: SORAFENIB
     Indication: FOLLICULAR THYROID CANCER
     Dosage: 600 MG
     Route: 048
     Dates: start: 20140323
  5. CALCIMAGON [CALCIUM CARBONATE,COLECALCIFEROL] [Concomitant]
  6. NEXAVAR [Suspect]
     Active Substance: SORAFENIB
     Indication: FOLLICULAR THYROID CANCER
     Dosage: 800 MG
     Route: 048
     Dates: start: 20130423
  7. NEXAVAR [Suspect]
     Active Substance: SORAFENIB
     Indication: FOLLICULAR THYROID CANCER
     Dosage: UNK
     Dates: end: 20141023
  8. NEXAVAR [Suspect]
     Active Substance: SORAFENIB
     Indication: FOLLICULAR THYROID CANCER
     Dosage: 400 MG
     Route: 048
     Dates: start: 20130823

REACTIONS (6)
  - Diarrhoea [Unknown]
  - Fatigue [Unknown]
  - Follicular thyroid cancer [Recovered/Resolved]
  - Stomatitis [Unknown]
  - Palmar-plantar erythrodysaesthesia syndrome [Unknown]
  - Alopecia [None]
